FAERS Safety Report 11073775 (Version 1)
Quarter: 2015Q2

REPORT INFORMATION
  Report Type: Spontaneous
  Country: PT (occurrence: PT)
  Receive Date: 20150428
  Receipt Date: 20150428
  Transmission Date: 20150821
  Serious: Yes (Hospitalization)
  Sender: FDA-Public Use
  Company Number: PT-BAUSCH-BL-2015-012299

PATIENT
  Age: 56 Year
  Sex: Male

DRUGS (4)
  1. ACETYLCYSTEINE. [Concomitant]
     Active Substance: ACETYLCYSTEINE
     Indication: CHRONIC OBSTRUCTIVE PULMONARY DISEASE
  2. IPRATROPIUM BROMIDE. [Suspect]
     Active Substance: IPRATROPIUM BROMIDE
     Indication: PRODUCT USED FOR UNKNOWN INDICATION
  3. MOMETASONE [Concomitant]
     Active Substance: MOMETASONE
     Indication: CHRONIC OBSTRUCTIVE PULMONARY DISEASE
  4. TIOTROPIUM BROMIDE [Concomitant]
     Active Substance: TIOTROPIUM BROMIDE
     Indication: CHRONIC OBSTRUCTIVE PULMONARY DISEASE

REACTIONS (4)
  - Bronchospasm [Unknown]
  - Chest pain [Unknown]
  - Stress cardiomyopathy [Unknown]
  - Respiratory acidosis [Unknown]
